FAERS Safety Report 12474374 (Version 1)
Quarter: 2016Q2

REPORT INFORMATION
  Report Type: Spontaneous
  Country: US (occurrence: None)
  Receive Date: 20160616
  Receipt Date: 20160616
  Transmission Date: 20160815
  Serious: Yes (Hospitalization)
  Sender: FDA-Public Use
  Company Number: None

PATIENT
  Age: 45 Year
  Sex: Male
  Weight: 90.72 kg

DRUGS (2)
  1. NASONEX [Suspect]
     Active Substance: MOMETASONE FUROATE
     Indication: MULTIPLE ALLERGIES
     Route: 055
     Dates: start: 20160523, end: 20160613
  2. MULTIVITAMIN GENERIC [Concomitant]

REACTIONS (3)
  - Anxiety [None]
  - Depression [None]
  - Insomnia [None]

NARRATIVE: CASE EVENT DATE: 20160530
